FAERS Safety Report 6526994-6 (Version None)
Quarter: 2010Q1

REPORT INFORMATION
  Report Type: 
  Country: None (occurrence: None)
  Receive Date: 20100105
  Receipt Date: 20091228
  Transmission Date: 20100710
  Serious: Yes (Other)
  Sender: FDA-Public Use
  Company Number: FR-PFIZER INC-2009315068

PATIENT
  Age: 25 Year
  Sex: Male

DRUGS (4)
  1. SOLU-MEDROL [Suspect]
     Dosage: UNK
     Route: 042
     Dates: start: 20091130, end: 20091130
  2. SYMBICORT [Concomitant]
     Dosage: 2 DF, 2X/DAY
  3. VENTOLIN [Concomitant]
     Dosage: UNK
  4. ENDOXAN [Concomitant]
     Dosage: 1300 MG
     Dates: start: 20081121

REACTIONS (4)
  - ABDOMINAL PAIN [None]
  - DIARRHOEA [None]
  - DYSPNOEA [None]
  - URTICARIA [None]
